FAERS Safety Report 7635603-4 (Version None)
Quarter: 2011Q3

REPORT INFORMATION
  Report Type: 
  Country: None (occurrence: None)
  Receive Date: 20110726
  Receipt Date: 20110713
  Transmission Date: 20111222
  Serious: Yes (Other)
  Sender: FDA-Public Use
  Company Number: PHEH2009US07671

PATIENT
  Sex: Female

DRUGS (7)
  1. AREDIA [Suspect]
  2. FLONASE [Concomitant]
  3. ZOMETA [Suspect]
     Dosage: 4 MG
     Route: 042
  4. FOSAMAX [Suspect]
  5. PERIDEX [Concomitant]
  6. SYNTHROID [Concomitant]
  7. ARIMIDEX [Concomitant]

REACTIONS (12)
  - OSTEONECROSIS OF JAW [None]
  - MULTIPLE MYELOMA [None]
  - PAIN [None]
  - ANHEDONIA [None]
  - ANXIETY [None]
  - DISABILITY [None]
  - GENERAL PHYSICAL HEALTH DETERIORATION [None]
  - GRAFT VERSUS HOST DISEASE [None]
  - INFLUENZA [None]
  - OESOPHAGEAL DILATATION [None]
  - SWELLING FACE [None]
  - GASTRIC ULCER [None]
